FAERS Safety Report 12200381 (Version 3)
Quarter: 2018Q4

REPORT INFORMATION
  Report Type: Spontaneous
  Country: FR (occurrence: FR)
  Receive Date: 20160322
  Receipt Date: 20181224
  Transmission Date: 20190204
  Serious: Yes (Life-Threatening, Hospitalization, Other)
  Sender: FDA-Public Use
  Company Number: FR-BRISTOL-MYERS SQUIBB COMPANY-BMS-2016-016578

PATIENT
  Age: 70 Year
  Sex: Male
  Weight: 84 kg

DRUGS (7)
  1. HYDREA [Suspect]
     Active Substance: HYDROXYUREA
     Indication: PRODUCT USED FOR UNKNOWN INDICATION
     Dosage: 500 MG, TID
     Route: 048
     Dates: start: 20151212
  2. HYDREA [Suspect]
     Active Substance: HYDROXYUREA
     Indication: PRODUCT USED FOR UNKNOWN INDICATION
     Dosage: 500 MG, BID
     Route: 048
     Dates: start: 20151222
  3. VIDAZA [Suspect]
     Active Substance: AZACITIDINE
     Indication: MYELOPROLIFERATIVE NEOPLASM
     Dosage: UNK
     Route: 058
     Dates: start: 20160208, end: 20160214
  4. PRADAXA [Suspect]
     Active Substance: DABIGATRAN ETEXILATE MESYLATE
     Indication: ATRIAL FIBRILLATION
     Route: 065
  5. NEBIVOLOL. [Concomitant]
     Active Substance: NEBIVOLOL
     Indication: PRODUCT USED FOR UNKNOWN INDICATION
     Route: 065
  6. PRADAXA [Suspect]
     Active Substance: DABIGATRAN ETEXILATE MESYLATE
     Indication: ARRHYTHMIA
     Dosage: 150 MG, BID
     Route: 048
     Dates: start: 20160215, end: 20160215
  7. HYDREA [Suspect]
     Active Substance: HYDROXYUREA
     Indication: PRODUCT USED FOR UNKNOWN INDICATION
     Dosage: 500 MG, QD
     Route: 048
     Dates: start: 20151228

REACTIONS (9)
  - Haematuria [Unknown]
  - Gingival bleeding [Recovered/Resolved]
  - Transfusion [Unknown]
  - Anaemia [Recovering/Resolving]
  - Acute kidney injury [Unknown]
  - Haemorrhagic disorder [Unknown]
  - Tumour lysis syndrome [Not Recovered/Not Resolved]
  - Epistaxis [Recovered/Resolved]
  - Blood creatinine increased [Not Recovered/Not Resolved]

NARRATIVE: CASE EVENT DATE: 20160208
